FAERS Safety Report 7618510-2 (Version None)
Quarter: 2011Q3

REPORT INFORMATION
  Report Type: 
  Country: None (occurrence: None)
  Receive Date: 20110718
  Receipt Date: 20110711
  Transmission Date: 20111222
  Serious: Yes (Hospitalization, Disabling, Other)
  Sender: FDA-Public Use
  Company Number: US-BAYER-2011-036743

PATIENT
  Age: 34 Year
  Sex: Female
  Weight: 57 kg

DRUGS (1)
  1. MIRENA [Suspect]
     Indication: MENORRHAGIA
     Dosage: 20 ?G, CONT
     Route: 015
     Dates: start: 20100416, end: 20110323

REACTIONS (7)
  - WALKING DISABILITY [None]
  - THROMBOSIS [None]
  - EMBOLISM ARTERIAL [None]
  - WOUND INFECTION [None]
  - PULSE ABSENT [None]
  - MENORRHAGIA [None]
  - PAIN IN EXTREMITY [None]
